FAERS Safety Report 5072636-9 (Version None)
Quarter: 2006Q3

REPORT INFORMATION
  Report Type: 
  Country: None (occurrence: None)
  Receive Date: 20060807
  Receipt Date: 20060616
  Transmission Date: 20061208
  Serious: Yes (Hospitalization)
  Sender: FDA-Public Use
  Company Number: 2006/01210

PATIENT
  Age: 6 Year
  Sex: Male
  Weight: 20 kg

DRUGS (6)
  1. SAWACILLIN [Suspect]
     Indication: STREPTOCOCCAL INFECTION
     Dosage: 200MG THREE TIMES PER DAY
     Route: 048
     Dates: start: 20060407, end: 20060418
  2. LEFTOSE [Concomitant]
     Indication: PHARYNGITIS
     Route: 048
     Dates: start: 20060407, end: 20060410
  3. MUCOSOLVAN [Concomitant]
     Indication: PHARYNGITIS
     Dosage: 2ML THREE TIMES PER DAY
     Route: 048
     Dates: start: 20060407, end: 20060410
  4. MEDICON [Concomitant]
     Indication: PHARYNGITIS
     Route: 048
     Dates: start: 20060418, end: 20060422
  5. ENTERONON-R [Concomitant]
     Dosage: .66G THREE TIMES PER DAY
     Route: 048
     Dates: start: 20060407, end: 20060418
  6. POLARAMINE [Concomitant]
     Indication: PHARYNGITIS
     Dosage: 5ML THREE TIMES PER DAY
     Route: 048
     Dates: start: 20060418, end: 20060422

REACTIONS (4)
  - COUGH [None]
  - DRUG ERUPTION [None]
  - ERYTHEMA MULTIFORME [None]
  - RASH [None]
